FAERS Safety Report 7406139-0 (Version None)
Quarter: 2011Q2

REPORT INFORMATION
  Report Type: 
  Country: None (occurrence: None)
  Receive Date: 20110411
  Receipt Date: 20110207
  Transmission Date: 20111010
  Serious: Yes (Other)
  Sender: FDA-Public Use
  Company Number: US-AMGEN-USASP2011007098

PATIENT
  Age: 59 Year
  Sex: Female

DRUGS (7)
  1. POTASSIUM CHLORIDE [Concomitant]
  2. BACLOFEN [Concomitant]
  3. VECTIBIX [Suspect]
     Indication: RECTAL CANCER
     Dates: start: 20110131
  4. TARKA [Concomitant]
  5. PYRIDOXINE HCL [Concomitant]
  6. HYDROCHLOROTHIAZIDE [Concomitant]
  7. COUMADIN [Concomitant]

REACTIONS (1)
  - SWELLING FACE [None]
